FAERS Safety Report 17880416 (Version 1)
Quarter: 2020Q2

REPORT INFORMATION
  Report Type: Report from Study
  Country: US (occurrence: US)
  Receive Date: 20200610
  Receipt Date: 20200610
  Transmission Date: 20200714
  Serious: No
  Sender: FDA-Public Use
  Company Number: NVSC2020US161575

PATIENT
  Sex: Male

DRUGS (1)
  1. GLEEVEC [Suspect]
     Active Substance: IMATINIB MESYLATE
     Indication: NEOPLASM SKIN
     Dosage: 400 MG, QD
     Route: 048

REACTIONS (4)
  - Product dose omission [Unknown]
  - Fluid retention [Unknown]
  - Epistaxis [Unknown]
  - Pain in extremity [Unknown]
